FAERS Safety Report 8563629 (Version 2)
Quarter: 2014Q1

REPORT INFORMATION
  Report Type: Spontaneous
  Country: ES (occurrence: ES)
  Receive Date: 20120515
  Receipt Date: 20140219
  Transmission Date: 20141002
  Serious: Yes (Hospitalization, Other)
  Sender: FDA-Public Use
  Company Number: ES-PFIZER INC-2012111581

PATIENT
  Age: 57 Year
  Sex: Female
  Weight: 75 kg

DRUGS (5)
  1. LYRICA [Suspect]
     Indication: ANXIETY
     Dosage: 300 MG, 1X/DAY
     Route: 048
     Dates: start: 200802, end: 20120220
  2. CLONAZEPAM [Concomitant]
     Dosage: 6 MG, 1X/DAY
     Route: 048
  3. DULOXETINE [Concomitant]
     Dosage: 120 MG, 1X/DAY
     Route: 048
     Dates: end: 201202
  4. VALPROIC ACID [Concomitant]
     Dosage: 1000 MG, 1X/DAY
     Route: 048
     Dates: start: 200909
  5. QUETIAPINE [Concomitant]
     Dosage: 200 MG, 1X/DAY
     Route: 048
     Dates: start: 201112

REACTIONS (2)
  - Thrombocytopenia [Recovered/Resolved]
  - Bipolar disorder [Unknown]
